FAERS Safety Report 8152646-5 (Version None)
Quarter: 2012Q1

REPORT INFORMATION
  Report Type: 
  Country: None (occurrence: None)
  Receive Date: 20120215
  Receipt Date: 20120208
  Transmission Date: 20120608
  Serious: Yes (Hospitalization, Other)
  Sender: FDA-Public Use
  Company Number: 2012SP002957

PATIENT
  Sex: Female

DRUGS (5)
  1. RIBAVIRIN [Suspect]
     Indication: HEPATITIS C
     Dates: start: 20120109
  2. RIBAVIRIN [Suspect]
     Indication: HEPATITIS C
     Dates: start: 20110107, end: 20110815
  3. TELAPREVIR [Suspect]
     Indication: HEPATITIS C
     Dates: start: 20120109
  4. PEG-INTRON [Suspect]
     Indication: HEPATITIS C
     Dates: start: 20120109
  5. PEG-INTRON [Suspect]
     Indication: HEPATITIS C
     Dates: start: 20110107, end: 20110815

REACTIONS (10)
  - MEMORY IMPAIRMENT [None]
  - WHITE BLOOD CELL COUNT DECREASED [None]
  - PULMONARY SARCOIDOSIS [None]
  - STAPHYLOCOCCAL INFECTION [None]
  - PYREXIA [None]
  - INCORRECT DOSE ADMINISTERED [None]
  - PNEUMONIA [None]
  - BIOPSY LARYNX ABNORMAL [None]
  - CHEST DISCOMFORT [None]
  - MENTAL DISORDER [None]
